FAERS Safety Report 5512507-4 (Version None)
Quarter: 2007Q4

REPORT INFORMATION
  Report Type: 
  Country: None (occurrence: None)
  Receive Date: 20071112
  Receipt Date: 20070530
  Transmission Date: 20080405
  Serious: No
  Sender: FDA-Public Use
  Company Number: A0653496A

PATIENT
  Age: 54 Year
  Sex: Male

DRUGS (7)
  1. AVANDAMET [Suspect]
     Dosage: 1TAB TWICE PER DAY
     Route: 048
     Dates: end: 20070530
  2. LANTUS [Concomitant]
  3. NOVOLIN 70/30 [Concomitant]
  4. LISINOPRIL [Concomitant]
  5. TENORMIN [Concomitant]
  6. IRON [Concomitant]
  7. CIALIS [Concomitant]

REACTIONS (2)
  - BLOOD PRESSURE INCREASED [None]
  - PALPITATIONS [None]
